FAERS Safety Report 14873605 (Version 1)
Quarter: 2018Q2

REPORT INFORMATION
  Report Type: Spontaneous
  Country: US (occurrence: US)
  Receive Date: 20180424
  Receipt Date: 20180424
  Transmission Date: 20180711
  Serious: No
  Sender: FDA-Public Use
  Company Number: None

PATIENT
  Age: 61 Year
  Sex: Female

DRUGS (1)
  1. GRANIX [Suspect]
     Active Substance: TBO-FILGRASTIM
     Indication: PRODUCT USED FOR UNKNOWN INDICATION
     Dosage: DAILY ON DAY 2 TO 5
     Route: 058
     Dates: start: 20180403

REACTIONS (3)
  - Injection site reaction [None]
  - Rash erythematous [None]
  - Injection site rash [None]

NARRATIVE: CASE EVENT DATE: 20180411
